FAERS Safety Report 21455214 (Version 2)
Quarter: 2023Q1

REPORT INFORMATION
  Report Type: Spontaneous
  Country: US (occurrence: US)
  Receive Date: 20221014
  Receipt Date: 20230210
  Transmission Date: 20230417
  Serious: No
  Sender: FDA-Public Use
  Company Number: US-BRISTOL-MYERS SQUIBB COMPANY-2022-119843

PATIENT
  Age: 77 Year
  Sex: Female
  Weight: 52.61 kg

DRUGS (1)
  1. REVLIMID [Suspect]
     Active Substance: LENALIDOMIDE
     Indication: Plasma cell myeloma
     Dosage: DAILY
     Route: 048

REACTIONS (4)
  - Muscle spasms [Unknown]
  - Muscle tightness [Unknown]
  - Mobility decreased [Unknown]
  - Balance disorder [Unknown]
